FAERS Safety Report 25984921 (Version 1)
Quarter: 2025Q4

REPORT INFORMATION
  Report Type: Spontaneous
  Country: JP (occurrence: JP)
  Receive Date: 20251031
  Receipt Date: 20251031
  Transmission Date: 20260118
  Serious: Yes (Other)
  Sender: MERCK SHARP & DOHME LLC
  Company Number: JP-009507513-2289190

PATIENT
  Age: 6 Decade
  Sex: Male

DRUGS (2)
  1. KEYTRUDA [Suspect]
     Active Substance: PEMBROLIZUMAB
     Indication: Renal cell carcinoma stage IV
     Route: 041
     Dates: end: 20250515
  2. LENVIMA [Suspect]
     Active Substance: LENVATINIB
     Indication: Renal cell carcinoma stage IV
     Dosage: 20 MG ONCE A DAY
     Route: 048
     Dates: start: 20250316, end: 20250515

REACTIONS (4)
  - Immune-mediated adverse reaction [Unknown]
  - Ejection fraction decreased [Not Recovered/Not Resolved]
  - Generalised oedema [Unknown]
  - Proteinuria [Not Recovered/Not Resolved]

NARRATIVE: CASE EVENT DATE: 20250101
